FAERS Safety Report 5343832-8 (Version None)
Quarter: 2007Q2

REPORT INFORMATION
  Report Type: 
  Country: None (occurrence: None)
  Receive Date: 20070604
  Receipt Date: 20070521
  Transmission Date: 20071010
  Serious: Yes (Life-Threatening, Hospitalization)
  Sender: FDA-Public Use
  Company Number: DE-AMGEN-US214368

PATIENT
  Sex: Female
  Weight: 83 kg

DRUGS (4)
  1. ENBREL [Suspect]
     Indication: RHEUMATOID ARTHRITIS
     Route: 058
     Dates: start: 20061120, end: 20070109
  2. DECORTIN [Suspect]
     Indication: RHEUMATOID ARTHRITIS
     Route: 048
     Dates: start: 20050701
  3. FOSAMAX [Concomitant]
     Indication: OSTEOPOROSIS
     Route: 048
     Dates: start: 20060901
  4. PANTOZOL [Concomitant]
     Route: 048
     Dates: start: 20050101

REACTIONS (4)
  - ABSCESS INTESTINAL [None]
  - DIVERTICULITIS [None]
  - LARGE INTESTINE PERFORATION [None]
  - OVARIAN ADENOMA [None]
